FAERS Safety Report 15924964 (Version 1)
Quarter: 2019Q1

REPORT INFORMATION
  Report Type: Spontaneous
  Country: JP (occurrence: JP)
  Receive Date: 20190206
  Receipt Date: 20190206
  Transmission Date: 20190417
  Serious: Yes (Hospitalization, Other)
  Sender: FDA-Public Use
  Company Number: PHJP2019JP001339

PATIENT
  Age: 74 Year
  Sex: Female

DRUGS (1)
  1. PAZOPANIB [Suspect]
     Active Substance: PAZOPANIB
     Indication: RENAL CANCER
     Dosage: UNK
     Route: 065

REACTIONS (7)
  - Eosinophilia [Unknown]
  - Gallbladder oedema [Unknown]
  - Cholangitis [Recovering/Resolving]
  - Cholecystitis [Recovering/Resolving]
  - Pleural effusion [Unknown]
  - Pyrexia [Unknown]
  - Abdominal pain upper [Unknown]
